FAERS Safety Report 24397169 (Version 1)
Quarter: 2024Q4

REPORT INFORMATION
  Report Type: Spontaneous
  Country: DE (occurrence: DE)
  Receive Date: 20241004
  Receipt Date: 20241004
  Transmission Date: 20250114
  Serious: Yes (Other)
  Sender: REGENERON
  Company Number: DE-BAYER-2024A138439

PATIENT
  Sex: Female

DRUGS (1)
  1. EYLEA HD [Suspect]
     Active Substance: AFLIBERCEPT
     Indication: Product used for unknown indication
     Dosage: UNK UNK, ONCE (BOTH EYE), 114.3 MG/ML,  SOLUTION FOR INJECTION
     Route: 031

REACTIONS (5)
  - Intra-ocular injection complication [Unknown]
  - Keratic precipitates [Unknown]
  - Eye irritation [Unknown]
  - Anterior chamber cell [Unknown]
  - Anterior chamber flare [Unknown]

NARRATIVE: CASE EVENT DATE: 20240924
